FAERS Safety Report 10043578 (Version 2)
Quarter: 2014Q1

REPORT INFORMATION
  Report Type: Spontaneous
  Country: JP (occurrence: JP)
  Receive Date: 20140328
  Receipt Date: 20140328
  Transmission Date: 20141002
  Serious: Yes (Other)
  Sender: FDA-Public Use
  Company Number: JP-ASTELLAS-2014JP002416

PATIENT
  Sex: Female

DRUGS (3)
  1. VESICARE [Suspect]
     Dosage: 2.5 MG, UNKNOWN/D
     Route: 048
  2. ALDACTONE A [Suspect]
     Dosage: 100 MG, UNKNOWN/D
     Route: 048
  3. DIART [Suspect]
     Dosage: 120 MG, UNKNOWN/D
     Route: 048
     Dates: end: 20140318

REACTIONS (1)
  - Cardiac failure [Recovered/Resolved]
